FAERS Safety Report 9870122 (Version 2)
Quarter: 2014Q1

REPORT INFORMATION
  Report Type: Spontaneous
  Country: US (occurrence: US)
  Receive Date: 20140205
  Receipt Date: 20140226
  Transmission Date: 20141002
  Serious: No
  Sender: FDA-Public Use
  Company Number: US-B.I. PHARMACEUTICALS,INC./RIDGEFIELD-2014-BI-03983BP

PATIENT
  Age: 71 Year
  Sex: Female

DRUGS (12)
  1. SPIRIVA [Suspect]
     Indication: CHRONIC OBSTRUCTIVE PULMONARY DISEASE
     Dosage: 18 MCG
     Route: 055
     Dates: start: 2011
  2. ALBUTEROL [Concomitant]
     Route: 055
  3. ADVAIR [Concomitant]
     Route: 055
  4. DILTIAZEM [Concomitant]
     Dosage: 180 MG
     Route: 048
  5. TOURSEMIDE [Concomitant]
     Dosage: 20 MG
     Route: 048
  6. LOVAZA [Concomitant]
     Dosage: 1 G
     Route: 048
  7. HYDROCHLOROTHIAZIDE [Concomitant]
     Dosage: 25 MG
     Route: 048
  8. METOPROLOL [Concomitant]
     Dosage: 25 MG
     Route: 048
  9. BUPROPRION [Concomitant]
     Dosage: 60 MG
     Route: 048
  10. LIPITOR [Concomitant]
     Dosage: 40 MG
     Route: 048
  11. CENTRUM [Concomitant]
     Route: 048
  12. CALTRATE [Concomitant]
     Route: 048

REACTIONS (4)
  - Local swelling [Recovered/Resolved]
  - Dysphonia [Not Recovered/Not Resolved]
  - Product quality issue [Not Recovered/Not Resolved]
  - Product quality issue [Recovered/Resolved]
